FAERS Safety Report 24033432 (Version 1)
Quarter: 2024Q3

REPORT INFORMATION
  Report Type: Spontaneous
  Country: US (occurrence: US)
  Receive Date: 20240701
  Receipt Date: 20240701
  Transmission Date: 20241017
  Serious: No
  Sender: UCB
  Company Number: US-UCBSA-2023049824

PATIENT
  Age: 28 Year
  Sex: Female

DRUGS (8)
  1. MIDAZOLAM [Suspect]
     Active Substance: MIDAZOLAM
     Indication: General anaesthesia
     Dosage: 5 MILLIGRAM
  2. MIDAZOLAM [Suspect]
     Active Substance: MIDAZOLAM
     Indication: Off label use
  3. NOREPINEPHRINE [Concomitant]
     Active Substance: NOREPINEPHRINE\NOREPINEPHRINE BITARTRATE
     Indication: Supportive care
     Dosage: 25-30 MICROGRAM/MIN
  4. PHENYLEPHRINE [Concomitant]
     Active Substance: PHENYLEPHRINE HYDROCHLORIDE
     Indication: Supportive care
     Dosage: 300 MICROGRAM/MINUTE
  5. VASOPRESSIN [Concomitant]
     Active Substance: VASOPRESSIN
     Indication: Supportive care
     Dosage: 0.08 UNITS/MIN
  6. EPINEPHRINE [Concomitant]
     Active Substance: EPINEPHRINE
     Indication: Product used for unknown indication
     Dosage: 10 MICROGRAM/MINUTE
  7. DOBUTAMINE [Concomitant]
     Active Substance: DOBUTAMINE HYDROCHLORIDE
     Indication: Product used for unknown indication
     Dosage: UNK
  8. ISOFLURANE [Concomitant]
     Active Substance: ISOFLURANE
     Indication: General anaesthesia
     Dosage: UNK, INHALED

REACTIONS (1)
  - No adverse event [Unknown]
